FAERS Safety Report 18099153 (Version 1)
Quarter: 2020Q3

REPORT INFORMATION
  Report Type: Spontaneous
  Country: US (occurrence: US)
  Receive Date: 20200731
  Receipt Date: 20200731
  Transmission Date: 20201103
  Serious: No
  Sender: FDA-Public Use
  Company Number: US-PARATEK PHARMACEUTICALS, INC.-2020PTK00043

PATIENT
  Age: 40 Year
  Weight: 140.59 kg

DRUGS (9)
  1. OXYBUTYNIN. [Concomitant]
     Active Substance: OXYBUTYNIN CHLORIDE
  2. SILVADENE [Concomitant]
     Active Substance: SILVER SULFADIAZINE
  3. ZEGERID [Concomitant]
     Active Substance: OMEPRAZOLE\SODIUM BICARBONATE
  4. NUZYRA [Suspect]
     Active Substance: OMADACYCLINE
     Indication: CELLULITIS
     Dosage: 450 MG, ONCE
     Route: 048
     Dates: start: 20200403, end: 20200403
  5. NUZYRA [Suspect]
     Active Substance: OMADACYCLINE
     Dosage: 300 MG, 1X/DAY
     Route: 048
     Dates: start: 20200404, end: 202004
  6. SINGULAIR [Concomitant]
     Active Substance: MONTELUKAST SODIUM
  7. XARELTO [Concomitant]
     Active Substance: RIVAROXABAN
  8. TYLENOL [Concomitant]
     Active Substance: ACETAMINOPHEN
  9. VENLAFAXINE [Concomitant]
     Active Substance: VENLAFAXINE HYDROCHLORIDE

REACTIONS (2)
  - Swollen tongue [Unknown]
  - Product prescribing error [Recovered/Resolved]

NARRATIVE: CASE EVENT DATE: 202004
